FAERS Safety Report 6993744-9 (Version None)
Quarter: 2010Q3

REPORT INFORMATION
  Report Type: 
  Country: None (occurrence: None)
  Receive Date: 20100917
  Receipt Date: 20100702
  Transmission Date: 20110219
  Serious: Yes (Other)
  Sender: FDA-Public Use
  Company Number: US-ASTRAZENECA-2010SE31010

PATIENT
  Sex: Female

DRUGS (2)
  1. SEROQUEL [Suspect]
     Indication: SLEEP DISORDER
     Route: 048
     Dates: start: 20100626, end: 20100701
  2. SEROQUEL [Suspect]
     Route: 048
     Dates: start: 20100701

REACTIONS (7)
  - AGITATION [None]
  - DRUG INEFFECTIVE [None]
  - FEELING ABNORMAL [None]
  - INSOMNIA [None]
  - NASAL CONGESTION [None]
  - PALPITATIONS [None]
  - SUICIDAL IDEATION [None]
